FAERS Safety Report 4373778-3 (Version None)
Quarter: 2004Q2

REPORT INFORMATION
  Report Type: 
  Country: None (occurrence: None)
  Receive Date: 20040607
  Receipt Date: 20040607
  Transmission Date: 20050107
  Serious: No
  Sender: FDA-Public Use
  Company Number: None

PATIENT
  Age: 5 Year
  Sex: Male
  Weight: 15.8759 kg

DRUGS (2)
  1. MOTRIN [Suspect]
     Indication: PYREXIA
     Dosage: 3 TABS ONCE ORAL; 2 TABS ONE ORAL
     Route: 048
     Dates: start: 20040604, end: 20040604
  2. MOTRIN [Suspect]
     Indication: PYREXIA
     Dosage: 3 TABS ONCE ORAL; 2 TABS ONE ORAL
     Route: 048
     Dates: start: 20040604, end: 20040604

REACTIONS (2)
  - GLOSSODYNIA [None]
  - PHARMACEUTICAL PRODUCT COMPLAINT [None]
